FAERS Safety Report 26120655 (Version 1)
Quarter: 2025Q4

REPORT INFORMATION
  Report Type: Other
  Country: EU (occurrence: EU)
  Receive Date: 20251204
  Receipt Date: 20251204
  Transmission Date: 20260118
  Serious: Yes (Other)
  Sender: Atnahs Healthcare
  Company Number: None

PATIENT

DRUGS (1)
  1. TORADOL [Suspect]
     Active Substance: KETOROLAC TROMETHAMINE
     Indication: Pain
     Dosage: 30 MG
     Route: 042
     Dates: start: 20250318, end: 20250318

REACTIONS (3)
  - Erythema [Recovered/Resolved]
  - Drug hypersensitivity [Recovered/Resolved]
  - Medication error [Recovered/Resolved]

NARRATIVE: CASE EVENT DATE: 20250318
